FAERS Safety Report 8956474 (Version 1)
Quarter: 2012Q4

REPORT INFORMATION
  Report Type: 
  Country: US (occurrence: US)
  Receive Date: 20121210
  Receipt Date: 20121210
  Transmission Date: 20130627
  Serious: No
  Sender: FDA-Public Use
  Company Number: US-PFIZER INC-2012310005

PATIENT
  Age: 38 Year
  Sex: Female

DRUGS (2)
  1. PRISTIQ [Suspect]
     Dosage: 50 mg, daily
  2. PRISTIQ [Suspect]
     Dosage: 50 mg, 3x/day

REACTIONS (2)
  - Malabsorption [Unknown]
  - Medication residue [Unknown]
